APPROVED DRUG PRODUCT: METHYLPHENIDATE HYDROCHLORIDE
Active Ingredient: METHYLPHENIDATE HYDROCHLORIDE
Strength: 2.5MG
Dosage Form/Route: TABLET, CHEWABLE;ORAL
Application: A204954 | Product #001
Applicant: STRIDES PHARMA GLOBAL PTE LTD
Approved: Jan 26, 2017 | RLD: No | RS: No | Type: DISCN